FAERS Safety Report 7539276-0 (Version None)
Quarter: 2011Q2

REPORT INFORMATION
  Report Type: 
  Country: None (occurrence: None)
  Receive Date: 20110610
  Receipt Date: 20110526
  Transmission Date: 20111010
  Serious: Yes (Death)
  Sender: FDA-Public Use
  Company Number: ES-CELGENEUS-144-50794-11053301

PATIENT
  Age: 58 Year
  Sex: Male

DRUGS (1)
  1. VIDAZA [Suspect]
     Dosage: 125 MILLIGRAM
     Route: 065
     Dates: start: 20100301, end: 20101201

REACTIONS (1)
  - NO THERAPEUTIC RESPONSE [None]
